FAERS Safety Report 8177002-5 (Version None)
Quarter: 2012Q1

REPORT INFORMATION
  Report Type: 
  Country: None (occurrence: None)
  Receive Date: 20120301
  Receipt Date: 20120221
  Transmission Date: 20120608
  Serious: Yes (Life-Threatening, Hospitalization, Other)
  Sender: FDA-Public Use
  Company Number: US-BAYER-2011-057068

PATIENT
  Sex: Female

DRUGS (4)
  1. CLONAZEPAM [Concomitant]
     Dosage: UNK
     Dates: start: 20061229
  2. YASMIN [Suspect]
  3. LEVOXYL [Concomitant]
     Dosage: 50 MG, UNK
     Dates: start: 20061024
  4. PROPO-N/APAP [Concomitant]
     Dosage: UNK
     Dates: start: 20070103

REACTIONS (8)
  - GENERAL PHYSICAL HEALTH DETERIORATION [None]
  - THROMBOSIS [None]
  - ANHEDONIA [None]
  - PAIN [None]
  - INJURY [None]
  - DEEP VEIN THROMBOSIS [None]
  - ANXIETY [None]
  - EMOTIONAL DISTRESS [None]
